FAERS Safety Report 24118462 (Version 1)
Quarter: 2024Q3

REPORT INFORMATION
  Report Type: Report from Study
  Country: CA (occurrence: CA)
  Receive Date: 20240722
  Receipt Date: 20240722
  Transmission Date: 20241016
  Serious: Yes (Hospitalization)
  Sender: Alvotech
  Company Number: CA-JAMP PHARMA CORPORATION-2024-JAM-CA-01173

PATIENT
  Age: 81 Year
  Sex: Male

DRUGS (4)
  1. SIMLANDI [Suspect]
     Active Substance: ADALIMUMAB-RYVK
     Indication: Rheumatoid arthritis
     Dosage: 40 MILLIGRAM, EVERY OTHER WEEKS
     Route: 058
     Dates: start: 20240709
  2. PREDNISOLONE [Suspect]
     Active Substance: PREDNISOLONE
     Indication: Product used for unknown indication
     Dosage: UNK
     Route: 065
  3. METHOTREXATE [Suspect]
     Active Substance: METHOTREXATE
     Indication: Product used for unknown indication
     Dosage: UNK
     Route: 065
  4. SIMLANDI [Suspect]
     Active Substance: ADALIMUMAB-RYVK
     Indication: Rheumatoid arthritis
     Dosage: 40 MILLIGRAM, EVERY OTHER WEEKS
     Route: 058
     Dates: start: 20240507

REACTIONS (5)
  - Adverse reaction [Unknown]
  - Haemorrhage [Unknown]
  - Full blood count decreased [Unknown]
  - Haemoglobin decreased [Unknown]
  - Dyspnoea [Unknown]
